FAERS Safety Report 5297386-5 (Version None)
Quarter: 2007Q2

REPORT INFORMATION
  Report Type: 
  Country: None (occurrence: None)
  Receive Date: 20070409
  Receipt Date: 20070329
  Transmission Date: 20071010
  Serious: Yes (Death)
  Sender: FDA-Public Use
  Company Number: 2007SP005852

PATIENT

DRUGS (2)
  1. NOXAFIL [Suspect]
     Indication: DRUG USE FOR UNKNOWN INDICATION
  2. GASTRIC PROTECTOR NOS (NO PREF. NAME) [Suspect]
     Indication: GASTRIC DISORDER

REACTIONS (2)
  - DRUG INTERACTION [None]
  - PSEUDOMONAS INFECTION [None]
